FAERS Safety Report 16211100 (Version 1)
Quarter: 2019Q2

REPORT INFORMATION
  Report Type: Spontaneous
  Country: US (occurrence: US)
  Receive Date: 20190314
  Receipt Date: 20190314
  Transmission Date: 20190711
  Serious: Yes (Hospitalization)
  Sender: FDA-Public Use
  Company Number: None

PATIENT
  Age: 19 Year
  Sex: Male

DRUGS (5)
  1. LACTULOSE. [Concomitant]
     Active Substance: LACTULOSE
  2. URSODIOL. [Concomitant]
     Active Substance: URSODIOL
  3. PULMOZYME [Suspect]
     Active Substance: DORNASE ALFA
     Indication: CYSTIC FIBROSIS
     Dosage: ?          OTHER DOSE:2.5 MG ;?
     Route: 055
     Dates: start: 20180215
  4. XIFAXAN [Concomitant]
     Active Substance: RIFAXIMIN
  5. BETHKIS [Suspect]
     Active Substance: TOBRAMYCIN
     Indication: CYSTIC FIBROSIS

REACTIONS (1)
  - Ammonia abnormal [None]

NARRATIVE: CASE EVENT DATE: 20190309
